FAERS Safety Report 6442732-X (Version None)
Quarter: 2009Q4

REPORT INFORMATION
  Report Type: 
  Country: None (occurrence: None)
  Receive Date: 20091112
  Receipt Date: 20091102
  Transmission Date: 20100525
  Serious: Yes (Other)
  Sender: FDA-Public Use
  Company Number: 1-20595127

PATIENT
  Age: 21 Year

DRUGS (1)
  1. METHADONE HCL [Suspect]

REACTIONS (2)
  - ANAEMIA [None]
  - BONE MARROW FAILURE [None]
